FAERS Safety Report 20222920 (Version 1)
Quarter: 2021Q4

REPORT INFORMATION
  Report Type: Spontaneous
  Country: MY (occurrence: MY)
  Receive Date: 20211223
  Receipt Date: 20211223
  Transmission Date: 20220303
  Serious: Yes (Other)
  Sender: FDA-Public Use
  Company Number: MY-PFIZER INC-202101791140

PATIENT
  Age: 68 Year
  Sex: Male

DRUGS (1)
  1. DILANTIN [Suspect]
     Active Substance: PHENYTOIN
     Indication: Epilepsy
     Dosage: 3 DF, DAILY
     Route: 048

REACTIONS (2)
  - Rash maculo-papular [Recovered/Resolved]
  - Lip swelling [Recovered/Resolved]
